FAERS Safety Report 7812236-8 (Version None)
Quarter: 2011Q4

REPORT INFORMATION
  Report Type: 
  Country: None (occurrence: None)
  Receive Date: 20111013
  Receipt Date: 20110809
  Transmission Date: 20120403
  Serious: No
  Sender: FDA-Public Use
  Company Number: US-NOVEN-11US002962

PATIENT
  Sex: Male

DRUGS (3)
  1. FENTANYL [Suspect]
     Dosage: 75 UG, Q72H
     Route: 062
  2. PERCOCET [Concomitant]
     Indication: PAIN
     Dosage: 2 UNK, QD
     Route: 048
  3. FENTANYL [Suspect]
     Indication: NEURALGIA
     Dosage: 75 UG, Q72H
     Route: 062

REACTIONS (2)
  - INADEQUATE ANALGESIA [None]
  - PRODUCT QUALITY ISSUE [None]
